FAERS Safety Report 4553380-0 (Version None)
Quarter: 2005Q1

REPORT INFORMATION
  Report Type: 
  Country: None (occurrence: None)
  Receive Date: 20050112
  Receipt Date: 20050104
  Transmission Date: 20050727
  Serious: Yes (Disabling)
  Sender: FDA-Public Use
  Company Number: 2005GB00016

PATIENT
  Age: 54 Year
  Sex: Male
  Weight: 84.09 kg

DRUGS (3)
  1. CRESTOR [Suspect]
     Indication: HYPERCHOLESTEROLAEMIA
     Dosage: 20 MG DAILY PO
     Route: 048
     Dates: start: 20031028, end: 20041124
  2. VALSARTAN [Concomitant]
  3. BEDROFLUMETHIAZIDE [Concomitant]

REACTIONS (1)
  - VISION BLURRED [None]
